FAERS Safety Report 17290082 (Version 13)
Quarter: 2023Q2

REPORT INFORMATION
  Report Type: Report from Study
  Country: JP (occurrence: JP)
  Receive Date: 20200120
  Receipt Date: 20230606
  Transmission Date: 20230721
  Serious: Yes (Hospitalization, Other)
  Sender: FDA-Public Use
  Company Number: JP-BRISTOL-MYERS SQUIBB COMPANY-BMS-2019-050885

PATIENT
  Age: 31 Year
  Sex: Male
  Weight: 75.5 kg

DRUGS (4)
  1. YERVOY [Suspect]
     Active Substance: IPILIMUMAB
     Indication: Malignant melanoma
     Dosage: 3 MILLIGRAM/KILOGRAM
     Route: 041
     Dates: start: 20181011, end: 20181126
  2. OPDIVO [Suspect]
     Active Substance: NIVOLUMAB
     Indication: Malignant melanoma
     Dosage: 80 MILLIGRAM
     Route: 041
     Dates: start: 20181011, end: 20181126
  3. TAFINLAR [Suspect]
     Active Substance: DABRAFENIB MESYLATE
     Indication: Malignant melanoma
     Dosage: 300 MILLIGRAM, QD
     Route: 048
     Dates: start: 20181210
  4. MEKINIST [Suspect]
     Active Substance: TRAMETINIB DIMETHYL SULFOXIDE
     Indication: Malignant melanoma
     Dosage: 2 MILLIGRAM
     Route: 048
     Dates: start: 20181210

REACTIONS (6)
  - Hypophysitis [Recovering/Resolving]
  - Secondary adrenocortical insufficiency [Unknown]
  - Hyperthyroidism [Recovering/Resolving]
  - Immune-mediated uveitis [Recovering/Resolving]
  - Hypothyroidism [Recovering/Resolving]
  - Hypothalamic pituitary adrenal axis suppression [Unknown]

NARRATIVE: CASE EVENT DATE: 20181105
